FAERS Safety Report 21340065 (Version 2)
Quarter: 2022Q3

REPORT INFORMATION
  Report Type: Spontaneous
  Country: US (occurrence: US)
  Receive Date: 20220915
  Receipt Date: 20220923
  Transmission Date: 20221027
  Serious: No
  Sender: FDA-Public Use
  Company Number: US-SA-SAC20220914000058

PATIENT
  Age: 55 Year
  Sex: Female

DRUGS (1)
  1. CABLIVI [Suspect]
     Active Substance: CAPLACIZUMAB-YHDP
     Indication: Thrombotic microangiopathy
     Dosage: 11 MG, QD
     Route: 058
     Dates: start: 20220902

REACTIONS (4)
  - Platelet count decreased [Recovering/Resolving]
  - Immune system disorder [Unknown]
  - ADAMTS13 activity decreased [Unknown]
  - Injection site erythema [Unknown]

NARRATIVE: CASE EVENT DATE: 20220901
